FAERS Safety Report 7604798-0 (Version None)
Quarter: 2011Q3

REPORT INFORMATION
  Report Type: 
  Country: None (occurrence: None)
  Receive Date: 20110712
  Receipt Date: 20110707
  Transmission Date: 20111222
  Serious: Yes (Hospitalization)
  Sender: FDA-Public Use
  Company Number: US-GILEAD-2011-0041437

PATIENT
  Age: 74 Year
  Sex: Female

DRUGS (15)
  1. LETAIRIS [Suspect]
     Indication: PULMONARY HYPERTENSION
     Route: 048
     Dates: start: 20110610, end: 20110616
  2. LASIX [Concomitant]
  3. ELAVIL [Concomitant]
  4. ZOCOR [Concomitant]
  5. LEVOTHROID [Concomitant]
  6. K-TAB [Concomitant]
  7. NITROSTAT [Concomitant]
  8. PROAIR HFA [Concomitant]
  9. COLACE [Concomitant]
  10. PRILOSEC [Concomitant]
  11. QVAR 40 [Concomitant]
  12. NORCO [Concomitant]
  13. LETAIRIS [Suspect]
     Indication: SCLERODERMA
  14. ASCORBIC ACID [Concomitant]
  15. FERROUS GLUCONATE [Concomitant]

REACTIONS (3)
  - OEDEMA PERIPHERAL [None]
  - WEIGHT INCREASED [None]
  - DYSPNOEA [None]
